FAERS Safety Report 7769805-3 (Version None)
Quarter: 2011Q3

REPORT INFORMATION
  Report Type: 
  Country: None (occurrence: None)
  Receive Date: 20110922
  Receipt Date: 20110404
  Transmission Date: 20111222
  Serious: No
  Sender: FDA-Public Use
  Company Number: US-ASTRAZENECA-2011SE19027

PATIENT
  Age: 41 Year
  Sex: Male
  Weight: 73 kg

DRUGS (4)
  1. TOPAMAX [Concomitant]
     Indication: MIGRAINE
     Route: 048
  2. SEROQUEL [Suspect]
     Indication: SLEEP DISORDER
     Route: 048
     Dates: start: 20050101, end: 20110330
  3. TEGRETOL [Concomitant]
     Indication: CONVULSION
     Route: 048
  4. SEROQUEL [Suspect]
     Indication: BIPOLAR DISORDER
     Route: 048
     Dates: start: 20050101, end: 20110330

REACTIONS (6)
  - TREMOR [None]
  - OFF LABEL USE [None]
  - WITHDRAWAL SYNDROME [None]
  - INSOMNIA [None]
  - VOMITING [None]
  - DRUG DOSE OMISSION [None]
